FAERS Safety Report 6863578-4 (Version None)
Quarter: 2010Q3

REPORT INFORMATION
  Report Type: 
  Country: None (occurrence: None)
  Receive Date: 20100721
  Receipt Date: 20080229
  Transmission Date: 20110219
  Serious: No
  Sender: FDA-Public Use
  Company Number: US-PFIZER INC-2008021863

PATIENT
  Age: 50 Year
  Sex: Male

DRUGS (2)
  1. CHANTIX [Suspect]
  2. DRUG USED IN DIABETES [Concomitant]
     Indication: DIABETES MELLITUS

REACTIONS (1)
  - AGITATION [None]
